FAERS Safety Report 22061150 (Version 1)
Quarter: 2023Q1

REPORT INFORMATION
  Report Type: Spontaneous
  Country: None (occurrence: US)
  Receive Date: 20230303
  Receipt Date: 20230303
  Transmission Date: 20230418
  Serious: No
  Sender: FDA-Public Use
  Company Number: US-Nexgen Pharma, Inc.-2138680

PATIENT
  Age: 68 Year
  Sex: Female
  Weight: 86.364 kg

DRUGS (2)
  1. FIORICET WITH CODEINE [Suspect]
     Active Substance: ACETAMINOPHEN\BUTALBITAL\CAFFEINE\CODEINE PHOSPHATE
     Indication: Headache
     Route: 048
  2. REMODULIN [Suspect]
     Active Substance: TREPROSTINIL
     Route: 065

REACTIONS (1)
  - Drug ineffective [Unknown]
